FAERS Safety Report 7820091-5 (Version None)
Quarter: 2011Q4

REPORT INFORMATION
  Report Type: 
  Country: None (occurrence: None)
  Receive Date: 20111018
  Receipt Date: 20111013
  Transmission Date: 20120403
  Serious: Yes (Disabling, Other)
  Sender: FDA-Public Use
  Company Number: GB-PFIZER INC-2011245725

PATIENT
  Age: 68 Year
  Sex: Male

DRUGS (1)
  1. ATORVASTATIN CALCIUM [Suspect]
     Indication: TYPE 2 DIABETES MELLITUS
     Dosage: 10MG, UNK
     Route: 048
     Dates: start: 20090801, end: 20110701

REACTIONS (3)
  - HYPOAESTHESIA [None]
  - PERONEAL NERVE PALSY [None]
  - NEUROPATHY PERIPHERAL [None]
